FAERS Safety Report 10205943 (Version 1)
Quarter: 2014Q2

REPORT INFORMATION
  Report Type: Spontaneous
  Country: MX (occurrence: MX)
  Receive Date: 20140530
  Receipt Date: 20140530
  Transmission Date: 20141212
  Serious: Yes (Disabling)
  Sender: FDA-Public Use
  Company Number: MX-ROCHE-1408894

PATIENT
  Age: 34 Year
  Sex: Female
  Weight: 56 kg

DRUGS (2)
  1. LEXOTAN [Suspect]
     Indication: DEPRESSION
     Dosage: 1-1-1
     Route: 048
     Dates: start: 1993, end: 2005
  2. RIVOTRIL [Suspect]
     Indication: DEPRESSION
     Route: 048
     Dates: start: 2005

REACTIONS (8)
  - Disease progression [Not Recovered/Not Resolved]
  - Asthenia [Not Recovered/Not Resolved]
  - Abasia [Not Recovered/Not Resolved]
  - Anxiety [Not Recovered/Not Resolved]
  - Stress [Not Recovered/Not Resolved]
  - Medication error [Unknown]
  - Drug ineffective [Unknown]
  - Off label use [Unknown]
